FAERS Safety Report 8792950 (Version 2)
Quarter: 2015Q1

REPORT INFORMATION
  Report Type: Report from Study
  Country: US (occurrence: US)
  Receive Date: 20120918
  Receipt Date: 20150302
  Transmission Date: 20150721
  Serious: Yes (Death)
  Sender: FDA-Public Use
  Company Number: US-ROCHE-1098644

PATIENT
  Age: 52 Year
  Sex: Female

DRUGS (16)
  1. TAXOTERE [Concomitant]
     Active Substance: DOCETAXEL
     Route: 042
  2. CEFTRIAXONE. [Concomitant]
     Active Substance: CEFTRIAXONE
     Route: 065
  3. SOLU-MEDROL [Concomitant]
     Active Substance: METHYLPREDNISOLONE SODIUM SUCCINATE
     Route: 042
  4. ALOXI [Concomitant]
     Active Substance: PALONOSETRON HYDROCHLORIDE
     Route: 042
  5. ZOFRAN [Concomitant]
     Active Substance: ONDANSETRON HYDROCHLORIDE
     Route: 042
  6. ADRIAMYCIN [Concomitant]
     Active Substance: DOXORUBICIN HYDROCHLORIDE
     Route: 042
  7. PHENERGAN [Concomitant]
     Active Substance: PROMETHAZINE HYDROCHLORIDE
     Route: 042
  8. ALTEPLASE [Concomitant]
     Active Substance: ALTEPLASE
     Route: 042
  9. PROCRIT [Concomitant]
     Active Substance: ERYTHROPOIETIN
     Route: 042
  10. TAGAMET [Concomitant]
     Active Substance: CIMETIDINE
     Route: 042
  11. GEMZAR [Concomitant]
     Active Substance: GEMCITABINE HYDROCHLORIDE
     Route: 042
  12. VITAMIN C [Concomitant]
     Active Substance: ASCORBIC ACID
     Route: 042
  13. AVASTIN [Suspect]
     Active Substance: BEVACIZUMAB
     Indication: SOFT TISSUE SARCOMA
     Route: 042
     Dates: start: 20060602
  14. ADRIAMYCIN [Concomitant]
     Active Substance: DOXORUBICIN HYDROCHLORIDE
     Route: 065
  15. DEMEROL [Concomitant]
     Active Substance: MEPERIDINE HYDROCHLORIDE
     Route: 042
  16. FILGRASTIM [Concomitant]
     Active Substance: FILGRASTIM
     Route: 058

REACTIONS (6)
  - Fear [Unknown]
  - Constipation [Unknown]
  - Pain [Unknown]
  - Death [Fatal]
  - Off label use [Unknown]
  - Nausea [Unknown]

NARRATIVE: CASE EVENT DATE: 20070516
